FAERS Safety Report 5293873-4 (Version None)
Quarter: 2007Q2

REPORT INFORMATION
  Report Type: 
  Country: None (occurrence: None)
  Receive Date: 20070405
  Receipt Date: 20070320
  Transmission Date: 20071010
  Serious: Yes (Other)
  Sender: FDA-Public Use
  Company Number: 8022879

PATIENT
  Age: 24 Year
  Sex: Female
  Weight: 70 kg

DRUGS (2)
  1. KEPPRA [Suspect]
     Indication: PARTIAL SEIZURES
     Dosage: 500 MG 2/D; PO
     Route: 048
     Dates: start: 20040601
  2. CARBAMAZEPINE HEXAL [Suspect]
     Indication: PARTIAL SEIZURES
     Dosage: 300 MG 1/D; PO
     Route: 048
     Dates: start: 20020601

REACTIONS (1)
  - THROMBOCYTOPENIA [None]
